FAERS Safety Report 20407540 (Version 1)
Quarter: 2022Q1

REPORT INFORMATION
  Report Type: Spontaneous
  Country: HU (occurrence: HU)
  Receive Date: 20220131
  Receipt Date: 20220131
  Transmission Date: 20220423
  Serious: Yes (Other)
  Sender: FDA-Public Use
  Company Number: HU-BIOMARINAP-HU-2022-141058

PATIENT
  Age: 3 Year
  Sex: Female

DRUGS (1)
  1. BRINEURA [Suspect]
     Active Substance: CERLIPONASE ALFA
     Indication: Product used for unknown indication
     Dosage: UNK, QOW
     Route: 065

REACTIONS (4)
  - Myoclonic epilepsy [Recovering/Resolving]
  - Hypotonia [Unknown]
  - Communication disorder [Unknown]
  - Mastication disorder [Unknown]
